FAERS Safety Report 21530302 (Version 1)
Quarter: 2022Q4

REPORT INFORMATION
  Report Type: Report from Study
  Country: US (occurrence: US)
  Receive Date: 20221031
  Receipt Date: 20221031
  Transmission Date: 20230112
  Serious: Yes (Hospitalization)
  Sender: FDA-Public Use
  Company Number: US-TAKEDA-US202031741

PATIENT
  Age: 66 Year
  Sex: Female

DRUGS (1)
  1. HUMAN IMMUNOGLOBULIN G [Suspect]
     Active Substance: HUMAN IMMUNOGLOBULIN G
     Indication: Primary immunodeficiency syndrome
     Dosage: 20 GRAM, Q2WEEKS
     Route: 065

REACTIONS (26)
  - Fibromyalgia [Unknown]
  - Weight decreased [Unknown]
  - Contusion [Unknown]
  - Head injury [Unknown]
  - Fall [Unknown]
  - Oropharyngeal pain [Unknown]
  - Chronic fatigue syndrome [Unknown]
  - Fibromyalgia [Unknown]
  - Uterine prolapse [Unknown]
  - Infection [Unknown]
  - Sinusitis [Not Recovered/Not Resolved]
  - Tooth disorder [Unknown]
  - Toothache [Unknown]
  - Blood immunoglobulin G decreased [Unknown]
  - Gait disturbance [Unknown]
  - Neuralgia [Unknown]
  - Malaise [Unknown]
  - Vomiting [Not Recovered/Not Resolved]
  - Dizziness [Unknown]
  - Fatigue [Unknown]
  - Nausea [Not Recovered/Not Resolved]
  - Pyrexia [Unknown]
  - Infusion site extravasation [Unknown]
  - Pain [Unknown]
  - Infusion site pain [Unknown]
  - Arthralgia [Unknown]

NARRATIVE: CASE EVENT DATE: 20200928
